FAERS Safety Report 20883882 (Version 1)
Quarter: 2022Q2

REPORT INFORMATION
  Report Type: Spontaneous
  Country: US (occurrence: US)
  Receive Date: 20220527
  Receipt Date: 20220527
  Transmission Date: 20220721
  Serious: No
  Sender: FDA-Public Use
  Company Number: US-PFIZER INC-202200743617

PATIENT
  Age: 36 Year
  Sex: Female

DRUGS (2)
  1. PAXLOVID [Suspect]
     Active Substance: NIRMATRELVIR\RITONAVIR
     Indication: COVID-19 treatment
     Dosage: UNK
     Dates: start: 20220514, end: 20220518
  2. BAYER ASPIRIN [Concomitant]
     Active Substance: ASPIRIN
     Dosage: 162 MG
     Dates: start: 20220128, end: 20220522

REACTIONS (2)
  - Exposure during pregnancy [Unknown]
  - Symptom recurrence [Not Recovered/Not Resolved]

NARRATIVE: CASE EVENT DATE: 20220514
